FAERS Safety Report 5490398-8 (Version None)
Quarter: 2007Q4

REPORT INFORMATION
  Report Type: 
  Country: None (occurrence: None)
  Receive Date: 20071019
  Receipt Date: 20071009
  Transmission Date: 20080405
  Serious: Yes (Other)
  Sender: FDA-Public Use
  Company Number: PHEH2007US13337

PATIENT
  Sex: Female

DRUGS (5)
  1. TEGRETOL [Suspect]
     Indication: MOOD SWINGS
     Dosage: 600 MG, QHS
     Route: 048
     Dates: start: 20070906, end: 20070913
  2. TEGRETOL [Suspect]
     Dosage: 250 MG, QHS
     Route: 048
     Dates: start: 20070913, end: 20070920
  3. TEGRETOL [Suspect]
     Dosage: 200 MG, QHS
     Route: 048
     Dates: start: 20070920, end: 20070901
  4. TEGRETOL [Suspect]
     Dosage: 100 MG, QHS
     Route: 048
     Dates: start: 20070901, end: 20070901
  5. TEGRETOL [Suspect]
     Dosage: 200 MG, BID
     Route: 048

REACTIONS (1)
  - CONVULSION [None]
